FAERS Safety Report 21300814 (Version 1)
Quarter: 2022Q3

REPORT INFORMATION
  Report Type: Other
  Country: US (occurrence: None)
  Receive Date: 20220907
  Receipt Date: 20220907
  Transmission Date: 20221026
  Serious: Yes (Other)
  Sender: FDA-Public Use
  Company Number: US-ROCHE-3171703

PATIENT
  Sex: Male

DRUGS (2)
  1. RITUXAN [Suspect]
     Active Substance: RITUXIMAB
     Indication: Interstitial lung disease
     Dosage: NO
     Route: 041
     Dates: start: 2021, end: 202203
  2. RITUXAN [Suspect]
     Active Substance: RITUXIMAB
     Indication: Pneumonia

REACTIONS (2)
  - Interstitial lung disease [Unknown]
  - Off label use [Unknown]
